FAERS Safety Report 4972873-5 (Version None)
Quarter: 2006Q2

REPORT INFORMATION
  Report Type: 
  Country: None (occurrence: None)
  Receive Date: 20060410
  Receipt Date: 20060321
  Transmission Date: 20061013
  Serious: Yes (Death, Life-Threatening)
  Sender: FDA-Public Use
  Company Number: US200603005508

PATIENT
  Sex: Female

DRUGS (4)
  1. ZYPREXA [Suspect]
     Indication: DEMENTIA
     Dosage: 2.5 MG, DAILY (1/D); 2.5 MG, 2/D
     Dates: start: 20050201
  2. ZYPREXA [Suspect]
     Indication: DEMENTIA
     Dosage: 2.5 MG, DAILY (1/D); 2.5 MG, 2/D
     Dates: start: 20051118
  3. ATIVAN [Concomitant]
  4. BUSPAR/AUS/(BUSPIRONE HYDROCHLORIDE) [Concomitant]

REACTIONS (3)
  - ANXIETY [None]
  - FALL [None]
  - HAEMORRHAGE [None]
